FAERS Safety Report 10149435 (Version 4)
Quarter: 2014Q2

REPORT INFORMATION
  Report Type: Report from Study
  Country: JP (occurrence: JP)
  Receive Date: 20140502
  Receipt Date: 20140630
  Transmission Date: 20141212
  Serious: Yes (Hospitalization, Other)
  Sender: FDA-Public Use
  Company Number: JP-ROCHE-1391120

PATIENT
  Age: 77 Year
  Sex: Female
  Weight: 52.5 kg

DRUGS (3)
  1. RIBAVIRIN [Suspect]
     Indication: HEPATITIS C
     Route: 048
     Dates: start: 20131129, end: 20140220
  2. SOFOSBUVIR [Suspect]
     Indication: HEPATITIS C
     Dosage: LEDIPASVIR/SOFOSBUVIR ONE DOSE FORM TABLET
     Route: 048
     Dates: start: 20131129, end: 20140220
  3. LEDIPASVIR [Suspect]
     Indication: HEPATITIS C
     Dosage: LEDIPASVIR/SOFOSBUVIR ONE DOSE FORM TABLET
     Route: 048
     Dates: start: 20131129, end: 20140220

REACTIONS (1)
  - Cardiac failure congestive [Not Recovered/Not Resolved]
